FAERS Safety Report 8760008 (Version 2)
Quarter: 2012Q4

REPORT INFORMATION
  Report Type: 
  Country: US (occurrence: US)
  Receive Date: 20120829
  Receipt Date: 20120926
  Transmission Date: 20130627
  Serious: No
  Sender: FDA-Public Use
  Company Number: US-009507513-1208USA001020

PATIENT
  Sex: Female
  Weight: 90.7 kg

DRUGS (8)
  1. MIRALAX [Suspect]
     Indication: CONSTIPATION
     Dosage: 17 g, qd
     Route: 048
     Dates: start: 20120630, end: 20120724
  2. MIRALAX [Suspect]
     Indication: MEDICAL OBSERVATION
  3. METAMUCIL [Suspect]
     Indication: PRODUCT USED FOR UNKNOWN INDICATION
  4. METFORMIN [Concomitant]
     Indication: DIABETES MELLITUS
     Dosage: UNK, Unknown
     Route: 048
  5. LEVAMLODIPINE [Concomitant]
     Indication: HYPERTENSION
     Dosage: UNK, Unknown
  6. PRAVASTATIN SODIUM [Concomitant]
     Indication: BLOOD CHOLESTEROL
     Dosage: UNK, Unknown
  7. OMEPRAZOLE [Concomitant]
     Indication: DYSPEPSIA
     Dosage: UNK, Unknown
  8. LOSARTAN POTASSIUM [Concomitant]
     Indication: HYPERTENSION
     Dosage: UNK, Unknown

REACTIONS (5)
  - Diarrhoea [Recovered/Resolved]
  - Flatulence [Recovered/Resolved]
  - Faecal incontinence [Recovered/Resolved]
  - Incorrect drug administration duration [Unknown]
  - Drug ineffective [Unknown]
